FAERS Safety Report 23662587 (Version 1)
Quarter: 2024Q1

REPORT INFORMATION
  Report Type: Spontaneous
  Country: US (occurrence: US)
  Receive Date: 20240322
  Receipt Date: 20240322
  Transmission Date: 20240409
  Serious: Yes (Other)
  Sender: FDA-Public Use
  Company Number: US-REGENERON PHARMACEUTICALS, INC.-2024-048112

PATIENT
  Sex: Female

DRUGS (1)
  1. PRALUENT [Suspect]
     Active Substance: ALIROCUMAB
     Indication: Hypercholesterolaemia
     Dosage: 150 MG, Q2W
     Route: 058
     Dates: start: 202401

REACTIONS (7)
  - Neuropathy peripheral [Unknown]
  - Visual impairment [Unknown]
  - Vision blurred [Unknown]
  - Arthralgia [Unknown]
  - Back pain [Unknown]
  - Abdominal pain upper [Unknown]
  - Myalgia [Unknown]
